FAERS Safety Report 4673668-2 (Version None)
Quarter: 2005Q2

REPORT INFORMATION
  Report Type: 
  Country: None (occurrence: None)
  Receive Date: 20050523
  Receipt Date: 20050414
  Transmission Date: 20051028
  Serious: No
  Sender: FDA-Public Use
  Company Number: MED000084

PATIENT

DRUGS (1)
  1. LACTATED RINGER'S [Suspect]
     Dosage: INTRAVENOUS
     Route: 042
     Dates: start: 20050413

REACTIONS (1)
  - URTICARIA [None]
